FAERS Safety Report 25974839 (Version 1)
Quarter: 2025Q4

REPORT INFORMATION
  Report Type: Spontaneous
  Country: GB (occurrence: GB)
  Receive Date: 20251029
  Receipt Date: 20251029
  Transmission Date: 20260117
  Serious: Yes (Other)
  Sender: SAMSUNG BIOEPIS
  Company Number: GB-SAMSUNG BIOEPIS-SB-2025-32965

PATIENT
  Age: 44 Year
  Sex: Female

DRUGS (1)
  1. PYZCHIVA [Suspect]
     Active Substance: USTEKINUMAB-TTWE
     Indication: Colitis ulcerative
     Dates: start: 202504

REACTIONS (3)
  - Colitis ulcerative [Unknown]
  - Drug ineffective [Unknown]
  - Product substitution issue [Unknown]
